FAERS Safety Report 8553660-8 (Version None)
Quarter: 2012Q3

REPORT INFORMATION
  Report Type: 
  Country: None (occurrence: None)
  Receive Date: 20120725
  Receipt Date: 20120725
  Transmission Date: 20120928
  Serious: Yes (Hospitalization)
  Sender: FDA-Public Use
  Company Number: None

PATIENT
  Age: 81 Year
  Sex: Male
  Weight: 82 kg

DRUGS (1)
  1. MORPHINE SULFATE [Suspect]
     Dosage: 15 MG, BID, PO
     Route: 048
     Dates: start: 20120307, end: 20120316

REACTIONS (3)
  - OVERDOSE [None]
  - UNRESPONSIVE TO STIMULI [None]
  - LETHARGY [None]
